FAERS Safety Report 8614226-4 (Version None)
Quarter: 2012Q3

REPORT INFORMATION
  Report Type: 
  Country: None (occurrence: None)
  Receive Date: 20120823
  Receipt Date: 20120817
  Transmission Date: 20120928
  Serious: Yes (Other)
  Sender: FDA-Public Use
  Company Number: US-PFIZER INC-2012202994

PATIENT
  Age: 55 Year
  Sex: Female
  Weight: 76.6 kg

DRUGS (8)
  1. PERPHENAZINE AND AMITRIPTYLINE HCL [Concomitant]
     Indication: STRESS
  2. PROTONIX [Concomitant]
     Indication: GASTRIC DISORDER
     Dosage: 80 MG (40 MG, TWO AT A TIME), ONCE DAILY
     Route: 048
     Dates: start: 20050101
  3. PERPHENAZINE AND AMITRIPTYLINE HCL [Concomitant]
     Indication: MOOD ALTERED
     Dosage: 4/25 MG, AS NEEDED
  4. XANAX [Concomitant]
     Indication: SLEEP DISORDER
     Dosage: UNK
     Dates: start: 20050101
  5. PREMARIN [Suspect]
     Indication: MENOPAUSAL SYMPTOMS
     Dosage: 1.25 MG, ONCE DAILY
     Route: 048
  6. PREMARIN [Suspect]
     Indication: HORMONE REPLACEMENT THERAPY
     Dosage: 2.5 MG, ONCE DAILY
     Route: 048
     Dates: start: 19800101
  7. PREMARIN [Suspect]
     Indication: HOT FLUSH
  8. LORTAB [Concomitant]
     Indication: PAIN
     Dosage: 10/500 MG, UNK
     Dates: start: 20050101

REACTIONS (4)
  - WHITE BLOOD CELL COUNT INCREASED [None]
  - CONTUSION [None]
  - INFECTION [None]
  - ABDOMINAL DISTENSION [None]
